FAERS Safety Report 8582746-7 (Version None)
Quarter: 2012Q3

REPORT INFORMATION
  Report Type: 
  Country: None (occurrence: None)
  Receive Date: 20120809
  Receipt Date: 20120803
  Transmission Date: 20120928
  Serious: Yes (Hospitalization)
  Sender: FDA-Public Use
  Company Number: US-GILEAD-2012-0057954

PATIENT
  Sex: Female

DRUGS (3)
  1. COUMADIN [Suspect]
  2. LETAIRIS [Suspect]
     Indication: PULMONARY HYPERTENSION
     Dosage: 5 MG, UNK
     Route: 048
     Dates: start: 20100319
  3. LETAIRIS [Suspect]
     Indication: SCLERODERMA

REACTIONS (1)
  - TRANSFUSION [None]
